FAERS Safety Report 9964318 (Version 1)
Quarter: 2014Q1

REPORT INFORMATION
  Report Type: Spontaneous
  Country: US (occurrence: US)
  Receive Date: 20140305
  Receipt Date: 20140305
  Transmission Date: 20141002
  Serious: Yes (Other)
  Sender: FDA-Public Use
  Company Number: US-GLAXOSMITHKLINE-A1063183A

PATIENT
  Sex: Male

DRUGS (1)
  1. LOVAZA [Suspect]
     Indication: CARDIAC DISORDER
     Route: 065
     Dates: start: 2010

REACTIONS (2)
  - Dementia Alzheimer^s type [Unknown]
  - Prostate cancer [Unknown]
